FAERS Safety Report 5005125-8 (Version None)
Quarter: 2006Q2

REPORT INFORMATION
  Report Type: 
  Country: None (occurrence: None)
  Receive Date: 20060518
  Receipt Date: 20060418
  Transmission Date: 20061013
  Serious: Yes (Death, Hospitalization)
  Sender: FDA-Public Use
  Company Number: US-GILEAD-2006-0009470

PATIENT
  Age: 53 Year
  Sex: Male
  Weight: 46.308 kg

DRUGS (25)
  1. BLINDED EMTRICITABINE/TENOFOVIR DF [Suspect]
     Indication: HIV INFECTION
     Route: 048
     Dates: start: 20060206
  2. BLINDED ABACAVIR/LAMIVUDINE [Suspect]
     Indication: HIV INFECTION
     Route: 048
     Dates: start: 20060206
  3. EFAVIRENZ [Concomitant]
     Indication: HIV INFECTION
     Route: 048
     Dates: start: 20060206
  4. BACTRIM DS [Concomitant]
     Indication: PROPHYLAXIS
     Dates: start: 20051201
  5. FLUCONAZOLE [Concomitant]
     Dates: start: 20051201
  6. KEPPRA [Concomitant]
     Indication: CONVULSION
     Dates: start: 20051201
  7. ATORVASTATIN CALCIUM [Concomitant]
     Indication: HYPERLIPIDAEMIA
     Dates: start: 20051201
  8. ASCORBIC ACID [Concomitant]
     Dates: start: 20051201
  9. ZINC [Concomitant]
     Dates: start: 20051201
  10. COREG [Concomitant]
     Dates: start: 20051201
  11. LISINOPRIL [Concomitant]
     Dates: start: 20051201
  12. BENADRYL [Concomitant]
     Dates: start: 20060208
  13. PREDNISONE TAB [Concomitant]
     Indication: IMMUNE RECONSTITUTION SYNDROME
     Dates: start: 20060304
  14. ACYCLOVIR [Concomitant]
     Indication: HERPES VIRUS INFECTION
  15. COLACE [Concomitant]
  16. TYLENOL (CAPLET) [Concomitant]
  17. NEVIRAPINE [Concomitant]
  18. AZITHROMYCIN [Concomitant]
  19. ETHAMBUTOL [Concomitant]
  20. PYRAZINAMIDE [Concomitant]
  21. RIFABUTIN [Concomitant]
  22. PREVACID [Concomitant]
  23. VITAMIN B COMPLEX CAP [Concomitant]
  24. ISONIAZID [Concomitant]
  25. SSI [Concomitant]

REACTIONS (8)
  - ANAEMIA [None]
  - CLOSTRIDIUM DIFFICILE COLITIS [None]
  - GENERAL PHYSICAL HEALTH DETERIORATION [None]
  - IMMUNE RECONSTITUTION SYNDROME [None]
  - INTESTINAL PERFORATION [None]
  - MENTAL STATUS CHANGES [None]
  - PANCYTOPENIA [None]
  - RENAL FAILURE ACUTE [None]
